FAERS Safety Report 13214955 (Version 2)
Quarter: 2018Q1

REPORT INFORMATION
  Report Type: Spontaneous
  Country: US (occurrence: US)
  Receive Date: 20170209
  Receipt Date: 20180116
  Transmission Date: 20180508
  Serious: No
  Sender: FDA-Public Use
  Company Number: US-ALLERGAN-1680650US

PATIENT
  Age: 67 Year
  Sex: Female

DRUGS (2)
  1. LEVOTHYROXINE. [Concomitant]
     Active Substance: LEVOTHYROXINE
     Indication: HYPOTHYROIDISM
     Dosage: UNK
  2. BOTOX [Suspect]
     Active Substance: ONABOTULINUMTOXINA
     Indication: HYPERTONIA
     Dosage: UNK, SINGLE
     Route: 030
     Dates: start: 20160923, end: 20160923

REACTIONS (2)
  - Off label use [Unknown]
  - Urticaria [Recovered/Resolved]

NARRATIVE: CASE EVENT DATE: 2016
